FAERS Safety Report 10229721 (Version 2)
Quarter: 2014Q2

REPORT INFORMATION
  Report Type: Report from Study
  Country: CA (occurrence: CA)
  Receive Date: 20140611
  Receipt Date: 20140611
  Transmission Date: 20141212
  Serious: Yes (Other)
  Sender: FDA-Public Use
  Company Number: PHHY2014CA044535

PATIENT
  Sex: Female

DRUGS (8)
  1. GILENYA [Suspect]
     Indication: RELAPSING-REMITTING MULTIPLE SCLEROSIS
     Dosage: 0.5 MG, QD
     Route: 048
     Dates: start: 20140325, end: 20140506
  2. CELEBREX [Concomitant]
  3. CYMBALTA [Concomitant]
  4. VITAMIN D [Concomitant]
  5. COLACE [Concomitant]
  6. LYRICA [Concomitant]
  7. RESTORIL [Concomitant]
  8. SYNTHROID [Concomitant]

REACTIONS (9)
  - Nausea [Recovered/Resolved]
  - Fibromyalgia [Recovered/Resolved]
  - Neck pain [Recovered/Resolved]
  - Back pain [Recovered/Resolved]
  - Headache [Recovered/Resolved]
  - Chills [Unknown]
  - Hyperhidrosis [Unknown]
  - Arthralgia [Recovering/Resolving]
  - Dizziness [Unknown]
